FAERS Safety Report 12663442 (Version 2)
Quarter: 2016Q3

REPORT INFORMATION
  Report Type: Spontaneous
  Country: US (occurrence: US)
  Receive Date: 20160818
  Receipt Date: 20160908
  Transmission Date: 20161109
  Serious: Yes (Death, Hospitalization)
  Sender: FDA-Public Use
  Company Number: US-JNJFOC-20160811012

PATIENT
  Age: 83 Year
  Sex: Male
  Weight: 66.23 kg

DRUGS (3)
  1. ZYTIGA [Suspect]
     Active Substance: ABIRATERONE ACETATE
     Indication: PROSTATE CANCER
     Route: 048
     Dates: start: 20160515, end: 20160801
  2. ZYTIGA [Suspect]
     Active Substance: ABIRATERONE ACETATE
     Indication: PROSTATE CANCER
     Route: 048
     Dates: start: 20160513, end: 20160513
  3. PREDNISONE. [Concomitant]
     Active Substance: PREDNISONE
     Indication: PRODUCT USED FOR UNKNOWN INDICATION
     Route: 065

REACTIONS (9)
  - Duodenal ulcer haemorrhage [Fatal]
  - Septic shock [Fatal]
  - Back pain [Unknown]
  - Transient ischaemic attack [Unknown]
  - Duodenal ulcer perforation [Unknown]
  - Nausea [Unknown]
  - Pneumonia [Fatal]
  - Soft tissue infection [Fatal]
  - Bone pain [Unknown]

NARRATIVE: CASE EVENT DATE: 20160513
